FAERS Safety Report 17971035 (Version 2)
Quarter: 2020Q3

REPORT INFORMATION
  Report Type: Spontaneous
  Country: MX (occurrence: MX)
  Receive Date: 20200702
  Receipt Date: 20200708
  Transmission Date: 20201103
  Serious: Yes (Other)
  Sender: FDA-Public Use
  Company Number: MX-BAUSCH-BL-2020-018524

PATIENT
  Age: 19 Month
  Sex: Male

DRUGS (15)
  1. DEXAMETHASONE. [Suspect]
     Active Substance: DEXAMETHASONE
     Indication: NATURAL KILLER-CELL LEUKAEMIA
     Dosage: (40 MG/SQUARE METER/DOSE EVERY 8 HOURS FOR 12 DOSES, IV, STARTING ON DAY ONE), MIED PROTOCOL
     Route: 042
  2. MESNA. [Suspect]
     Active Substance: MESNA
     Indication: NATURAL KILLER-CELL LEUKAEMIA
     Dosage: (500 MG/M2/IV DOSE EVERY 6 HRS), CYCLICAL, MIED PROTOCOL
     Route: 042
  3. IFOSFAMIDE. [Suspect]
     Active Substance: IFOSFAMIDE
     Indication: NATURAL KILLER-CELL LEUKAEMIA
     Dosage: IFOSFAMIDE (1,500 MG/M2/DAY IN 1 HR ON DAYS 2?4), CYCLICAL, MIED PROTOCOL
     Route: 065
  4. FOLINIC ACID [Suspect]
     Active Substance: LEUCOVORIN
     Indication: NATURAL KILLER-CELL LEUKAEMIA
     Dosage: CYCLICAL (15 MG/M2/IV DOSE STARTING AT HOUR 36 OF METHOTREXATE FOR FIVE DOSES, MIED PROTOCOL
     Route: 042
  5. ETOPOSIDE. [Suspect]
     Active Substance: ETOPOSIDE
     Dosage: ETOPOSIDE (100 MG/M2/DAY IV IN 3 HRS ON DAYS 2?4), CYCLICAL, SMILE PROTOCOL
     Route: 042
  6. METHOTREXATE. [Suspect]
     Active Substance: METHOTREXATE
     Dosage: HIGH DOSES (5,000 MG/M2/DAY, 24 HRS. IV INFUSION ON DAY ONE, CYCLIC, SMILE PROTOCOL
     Route: 042
  7. DEXAMETHASONE. [Suspect]
     Active Substance: DEXAMETHASONE
     Dosage: DEXAMETHASONE (40 MG/M2/IV DOSE EVERY 8 HRS ON DAYS 2?4), CYCLICAL, SMILE PROTOCOL
     Route: 042
  8. ETOPOSIDE. [Suspect]
     Active Substance: ETOPOSIDE
     Indication: NATURAL KILLER-CELL LEUKAEMIA
     Dosage: ETOPOSIDE (200 MG/SQUARE METER/DAY OVER 3 HOURS ON DAYS 2?4, IV), CYCLICAL, MIED PROTOCOL
     Route: 042
  9. METHOTREXATE. [Suspect]
     Active Substance: METHOTREXATE
     Indication: NATURAL KILLER-CELL LEUKAEMIA
     Dosage: HIGH DOSES (5,000 MG/M2/DAY, 24 HRS. IV INFUSION ON DAY ONE, CYCLIC, MIED PROTOCOL
     Route: 042
  10. L?ASPARAGINASE [Suspect]
     Active Substance: ASPARAGINASE
     Indication: NATURAL KILLER-CELL LEUKAEMIA
     Dosage: L?ASPARAGINASE (6,000 IU/M2 ON DAYS 8, 10, 12, 14, 16, 18 AND 20), CYCLICAL
     Route: 065
  11. FOLINIC ACID [Suspect]
     Active Substance: LEUCOVORIN
     Dosage: CYCLICAL (15 MG/M2/IV DOSE STARTING AT HOUR 36 OF METHOTREXATE FOR FIVE DOSES, SMILE PROTOCOL
     Route: 042
  12. IFOSFAMIDE. [Suspect]
     Active Substance: IFOSFAMIDE
     Dosage: IFOSFAMIDE (1,500 MG/M2/DAY IN 1 HR ON DAYS 2?4), CYCLICAL, SMILE PROTOCOL
     Route: 065
  13. ALLOPURINOL. [Concomitant]
     Active Substance: ALLOPURINOL
     Indication: TUMOUR LYSIS SYNDROME
  14. MESNA. [Suspect]
     Active Substance: MESNA
     Dosage: (500 MG/M2/IV DOSE EVERY 6 HRS), CYCLICAL, SMILE PROTOCOL
     Route: 042
  15. GLUCOSE;SODIUM BICARBONATE [Concomitant]
     Indication: TUMOUR LYSIS SYNDROME
     Dosage: HYPERHYDRATION SOLUTIONS (GLUCOSE SOLUTION AT 5 PERCENT PLUS SODIUM BICARBONATE)

REACTIONS (3)
  - Septic shock [Unknown]
  - Haematotoxicity [Unknown]
  - Therapy partial responder [Unknown]
